FAERS Safety Report 20379434 (Version 1)
Quarter: 2022Q1

REPORT INFORMATION
  Report Type: Report from Study
  Country: BG (occurrence: BG)
  Receive Date: 20220126
  Receipt Date: 20220126
  Transmission Date: 20220424
  Serious: Yes (Other)
  Sender: FDA-Public Use
  Company Number: BG-BAYER-2022A009918

PATIENT
  Age: 55 Year
  Sex: Male

DRUGS (1)
  1. STIVARGA [Suspect]
     Active Substance: REGORAFENIB
     Indication: Colorectal cancer
     Dosage: 160 MG, QD
     Route: 048
     Dates: start: 20211001

REACTIONS (5)
  - Pain [None]
  - Pyrexia [None]
  - Dizziness [None]
  - Syncope [None]
  - Oedema peripheral [None]

NARRATIVE: CASE EVENT DATE: 20220101
